FAERS Safety Report 17504607 (Version 2)
Quarter: 2021Q4

REPORT INFORMATION
  Report Type: Spontaneous
  Country: US (occurrence: US)
  Receive Date: 20200305
  Receipt Date: 20211221
  Transmission Date: 20220304
  Serious: No
  Sender: FDA-Public Use
  Company Number: US-SA-2020SA054804

PATIENT
  Age: 52 Year
  Sex: Female

DRUGS (1)
  1. DUPIXENT [Suspect]
     Active Substance: DUPILUMAB
     Indication: Dermatitis
     Dosage: 300 MG,OTHER
     Route: 058
     Dates: start: 201909

REACTIONS (3)
  - Dermatitis [Unknown]
  - Therapy non-responder [Unknown]
  - Product use issue [Unknown]

NARRATIVE: CASE EVENT DATE: 20190901
